FAERS Safety Report 14393126 (Version 4)
Quarter: 2018Q2

REPORT INFORMATION
  Report Type: Report from Study
  Country: DE (occurrence: DE)
  Receive Date: 20180116
  Receipt Date: 20180613
  Transmission Date: 20180711
  Serious: Yes (Hospitalization, Other)
  Sender: FDA-Public Use
  Company Number: DE-TEVA-2018-DE-843848

PATIENT
  Age: 34 Month
  Sex: Male
  Weight: 12.2 kg

DRUGS (61)
  1. ASPARAGINASE [Suspect]
     Active Substance: ASPARAGINASE
     Indication: ACUTE LYMPHOCYTIC LEUKAEMIA
     Dosage: 5400 IU, UNK
     Route: 042
  2. ASPARAGINASE [Suspect]
     Active Substance: ASPARAGINASE
     Dosage: 5400 IU, UNK
     Route: 042
     Dates: start: 20160620
  3. VINCRISTINE [Suspect]
     Active Substance: VINCRISTINE
     Route: 042
     Dates: start: 20151223, end: 20151223
  4. DOXORUBICIN [Suspect]
     Active Substance: DOXORUBICIN
     Indication: ACUTE LYMPHOCYTIC LEUKAEMIA
     Dosage: 13.5 MG, UNK
     Route: 042
  5. DOXORUBICIN [Suspect]
     Active Substance: DOXORUBICIN
     Dosage: 13.5 MG, UNK
     Route: 042
     Dates: start: 20160310
  6. DOXORUBICIN [Suspect]
     Active Substance: DOXORUBICIN
     Dosage: 13.5 MG, UNK
     Route: 042
     Dates: start: 20160627
  7. CYCLOPHOSPHAMIDE. [Suspect]
     Active Substance: CYCLOPHOSPHAMIDE
     Indication: PHILADELPHIA CHROMOSOME POSITIVE
     Dosage: 550 MILLIGRAM DAILY; DAILY DOSE: 550 MG MILLIGRAM(S) EVERY DAY
     Route: 042
     Dates: start: 20151203, end: 20151203
  8. CYCLOPHOSPHAMIDE. [Suspect]
     Active Substance: CYCLOPHOSPHAMIDE
     Dosage: 560 MG, UNK
     Route: 042
     Dates: start: 20160416, end: 20160416
  9. CYCLOPHOSPHAMIDE. [Suspect]
     Active Substance: CYCLOPHOSPHAMIDE
     Route: 042
     Dates: start: 20151219, end: 20151221
  10. ETOPOSIDE. [Suspect]
     Active Substance: ETOPOSIDE
     Indication: ACUTE LYMPHOCYTIC LEUKAEMIA
     Dosage: 52 MG, (5 APPLICATIONS TO 52 MG
     Route: 042
     Dates: start: 20160206, end: 20160208
  11. DAUNORUBICIN [Suspect]
     Active Substance: DAUNORUBICIN
     Indication: PHILADELPHIA CHROMOSOME POSITIVE
     Dosage: 16 MILLIGRAM DAILY;
     Route: 042
     Dates: start: 20160118, end: 20160119
  12. ASPARAGINASE [Suspect]
     Active Substance: ASPARAGINASE
     Route: 042
  13. ASPARAGINASE [Suspect]
     Active Substance: ASPARAGINASE
     Dosage: 13000 IU (INTERNATIONAL UNIT) DAILY; DAILY DOSE: 13000 IU INTERNATIONAL UNIT(S) EVERY DAY
     Route: 042
     Dates: start: 20160209, end: 20160209
  14. ASPARAGINASE [Suspect]
     Active Substance: ASPARAGINASE
     Dosage: 5400 IU, UNK
     Route: 042
     Dates: start: 20160306
  15. CYTARABINE. [Suspect]
     Active Substance: CYTARABINE
     Dosage: 2160 MG, QD
     Route: 042
     Dates: start: 20151221
  16. VINCRISTINE [Suspect]
     Active Substance: VINCRISTINE
     Route: 042
     Dates: start: 20160114
  17. DOXORUBICIN [Suspect]
     Active Substance: DOXORUBICIN
     Dosage: 13.5 MG, UNK
     Route: 042
     Dates: start: 20160712
  18. METHOTREXATE. [Suspect]
     Active Substance: METHOTREXATE
     Indication: PHILADELPHIA CHROMOSOME POSITIVE
     Dosage: 2600 MILLIGRAM DAILY; DAILY DOSE: 2600 MG MILLIGRAM(S) EVERY DAY
     Route: 042
     Dates: start: 20160114, end: 20160115
  19. ASPARAGINASE [Suspect]
     Active Substance: ASPARAGINASE
     Route: 042
     Dates: start: 20160630
  20. ASPARAGINASE [Suspect]
     Active Substance: ASPARAGINASE
     Dosage: 13500 IU (INTERNATIONAL UNIT) DAILY; DAILY DOSE: 13500 IU INTERNATIONAL UNIT(S) EVERY DAY
     Route: 042
     Dates: start: 20151223, end: 20151223
  21. CYTARABINE. [Suspect]
     Active Substance: CYTARABINE
     Indication: PHILADELPHIA CHROMOSOME POSITIVE
     Dosage: 41 MILLIGRAM DAILY; DAILY DOSE: 41 MG MILLIGRAM(S) EVERY DAY
     Route: 042
     Dates: start: 20151109, end: 20151112
  22. CYTARABINE. [Suspect]
     Active Substance: CYTARABINE
     Dosage: 41 MILLIGRAM DAILY; DAILY DOSE: 41 MG MILLIGRAM(S) EVERY DAY
     Route: 042
     Dates: start: 20151019, end: 20151222
  23. VINCRISTINE [Suspect]
     Active Substance: VINCRISTINE
     Indication: ACUTE LYMPHOCYTIC LEUKAEMIA
     Route: 042
     Dates: start: 20160712
  24. VINCRISTINE [Suspect]
     Active Substance: VINCRISTINE
     Dosage: 1.6 MG, UNK
     Route: 042
     Dates: start: 20160119, end: 20160119
  25. GLIVEC [Suspect]
     Active Substance: IMATINIB MESYLATE
     Indication: ACUTE LYMPHOCYTIC LEUKAEMIA
     Dosage: 150 MILLIGRAM DAILY;
     Route: 048
     Dates: start: 20150921, end: 20170307
  26. CYTARABINE. [Suspect]
     Active Substance: CYTARABINE
     Route: 042
  27. CYTARABINE. [Suspect]
     Active Substance: CYTARABINE
     Dosage: 41 MILLIGRAM DAILY; DAILY DOSE: 41 MG MILLIGRAM(S) EVERY DAY
     Route: 042
     Dates: start: 20151102, end: 20151105
  28. VINCRISTINE [Suspect]
     Active Substance: VINCRISTINE
     Dosage: DAILY DOSE: 0.8 MG MILLIGRAM(S) EVERY
     Route: 042
     Dates: start: 20160303, end: 20160303
  29. VINCRISTINE [Suspect]
     Active Substance: VINCRISTINE
     Dosage: DAILY DOSE: 0.8 MG MILLIGRAM(S) EVERY
     Route: 042
     Dates: start: 20160620
  30. IFOSFAMIDE. [Suspect]
     Active Substance: IFOSFAMIDE
     Indication: PHILADELPHIA CHROMOSOME POSITIVE
  31. VINDESINE [Suspect]
     Active Substance: VINDESINE
     Indication: ACUTE LYMPHOCYTIC LEUKAEMIA
     Route: 042
     Dates: start: 20160114
  32. ASPARAGINASE [Suspect]
     Active Substance: ASPARAGINASE
     Indication: PHILADELPHIA CHROMOSOME POSITIVE
     Dosage: 5400 IU, UNK
     Route: 042
     Dates: start: 20160313
  33. CYTARABINE. [Suspect]
     Active Substance: CYTARABINE
     Indication: ACUTE LYMPHOCYTIC LEUKAEMIA
     Dosage: 41 MILLIGRAM DAILY; DAILY DOSE: 41 MG MILLIGRAM(S) EVERY DAY
     Route: 042
     Dates: start: 20151026, end: 20151029
  34. CYTARABINE. [Suspect]
     Active Substance: CYTARABINE
     Route: 042
     Dates: start: 20160204, end: 20160206
  35. CYTARABINE. [Suspect]
     Active Substance: CYTARABINE
     Route: 042
  36. GLIVEC [Suspect]
     Active Substance: IMATINIB MESYLATE
     Indication: PHILADELPHIA CHROMOSOME POSITIVE
  37. ASPARAGINASE [Suspect]
     Active Substance: ASPARAGINASE
     Route: 042
  38. VINCRISTINE [Suspect]
     Active Substance: VINCRISTINE
     Indication: PHILADELPHIA CHROMOSOME POSITIVE
     Dosage: DAILY DOSE: 0.8 MG MILLIGRAM(S) EVERY
     Route: 042
     Dates: start: 20160317
  39. VINCRISTINE [Suspect]
     Active Substance: VINCRISTINE
     Route: 042
     Dates: start: 20160627
  40. IFOSFAMIDE. [Suspect]
     Active Substance: IFOSFAMIDE
     Indication: ACUTE LYMPHOCYTIC LEUKAEMIA
     Dosage: 416 MILLIGRAM DAILY; DAILY DOSE: 416 MG MILLIGRAM(S) EVERY DAY
     Route: 042
     Dates: start: 20160115, end: 20160117
  41. VINDESINE [Suspect]
     Active Substance: VINDESINE
     Indication: PHILADELPHIA CHROMOSOME POSITIVE
     Route: 042
     Dates: start: 20160119, end: 20160119
  42. ASPARAGINASE [Suspect]
     Active Substance: ASPARAGINASE
     Route: 042
     Dates: start: 20160627
  43. VINCRISTINE [Suspect]
     Active Substance: VINCRISTINE
     Dosage: DAILY DOSE: 0.8 MG MILLIGRAM(S) EVERY
     Route: 042
     Dates: start: 20160324
  44. VINCRISTINE [Suspect]
     Active Substance: VINCRISTINE
     Route: 042
     Dates: start: 20151218
  45. DOXORUBICIN [Suspect]
     Active Substance: DOXORUBICIN
     Indication: PHILADELPHIA CHROMOSOME POSITIVE
     Route: 042
     Dates: start: 20160704
  46. DOXORUBICIN [Suspect]
     Active Substance: DOXORUBICIN
     Dosage: 13.5 MG, UNK
     Route: 042
     Dates: start: 20160620
  47. DOXORUBICIN [Suspect]
     Active Substance: DOXORUBICIN
     Dosage: 13.5 MG, UNK
     Route: 042
     Dates: start: 20160324
  48. DOXORUBICIN [Suspect]
     Active Substance: DOXORUBICIN
     Route: 042
     Dates: start: 20160303
  49. ETOPOSIDE. [Suspect]
     Active Substance: ETOPOSIDE
     Indication: PHILADELPHIA CHROMOSOME POSITIVE
  50. METHOTREXATE. [Suspect]
     Active Substance: METHOTREXATE
     Indication: ACUTE LYMPHOCYTIC LEUKAEMIA
     Dosage: 2700 MILLIGRAM DAILY; DAILY DOSE: 2700 MG MILLIGRAM(S) EVERY DAY
     Route: 042
     Dates: start: 20151218, end: 20151219
  51. METHOTREXATE. [Suspect]
     Active Substance: METHOTREXATE
     Indication: ACUTE LYMPHOCYTIC LEUKAEMIA
     Dosage: 2700 MILLIGRAM DAILY; DAILY DOSE: 2700 MG MILLIGRAM(S) EVERY DAY
     Route: 042
     Dates: start: 20151218, end: 20151219
  52. ASPARAGINASE [Suspect]
     Active Substance: ASPARAGINASE
     Route: 042
     Dates: start: 20160310
  53. ASPARAGINASE [Suspect]
     Active Substance: ASPARAGINASE
     Dosage: 1300 IU (INTERNATIONAL UNIT) DAILY; DAILY DOSE: 1300 IU INTERNATIONAL UNIT(S) EVERY DAY
     Route: 042
     Dates: start: 20160303
  54. CYTARABINE. [Suspect]
     Active Substance: CYTARABINE
     Dosage: 2160 MILLIGRAM DAILY; DAILY DOSE: 2160 MG MILLIGRAM(S) EVERY DAY
     Route: 042
     Dates: start: 20151221
  55. CYTARABINE. [Suspect]
     Active Substance: CYTARABINE
     Dosage: 42 MG, UNK
     Route: 042
  56. CYTARABINE. [Suspect]
     Active Substance: CYTARABINE
     Route: 042
  57. VINCRISTINE [Suspect]
     Active Substance: VINCRISTINE
     Indication: PHILADELPHIA CHROMOSOME POSITIVE
     Dosage: DAILY DOSE: 0.8 MG MILLIGRAM(S) EVERY
     Route: 042
     Dates: start: 20160310
  58. VINCRISTINE [Suspect]
     Active Substance: VINCRISTINE
     Indication: ACUTE LYMPHOCYTIC LEUKAEMIA
     Dosage: DAILY DOSE: 0.8 MG MILLIGRAM(S) EVERY
     Route: 042
     Dates: start: 20160704
  59. CYCLOPHOSPHAMIDE. [Suspect]
     Active Substance: CYCLOPHOSPHAMIDE
     Indication: ACUTE LYMPHOCYTIC LEUKAEMIA
     Dosage: 550 MILLIGRAM DAILY; DAILY DOSE: 550 MG MILLIGRAM(S) EVERY DAY
     Route: 042
     Dates: start: 20151017, end: 20151017
  60. CYCLOPHOSPHAMIDE. [Suspect]
     Active Substance: CYCLOPHOSPHAMIDE
     Dosage: 570 MG, UNK
     Route: 042
     Dates: start: 20160730, end: 20160730
  61. DAUNORUBICIN [Suspect]
     Active Substance: DAUNORUBICIN
     Indication: ACUTE LYMPHOCYTIC LEUKAEMIA

REACTIONS (22)
  - Febrile neutropenia [Recovered/Resolved]
  - Neutropenia [Recovered/Resolved]
  - Febrile neutropenia [Recovered/Resolved]
  - Neutropenia [Recovered/Resolved]
  - Neutropenia [Recovered/Resolved]
  - Pyrexia [Unknown]
  - Hypoxia [Unknown]
  - Stomatitis [Unknown]
  - Pyrexia [Recovered/Resolved]
  - Urinary tract infection [Unknown]
  - Febrile neutropenia [Recovered/Resolved]
  - Hypoxia [Recovered/Resolved]
  - Lymphopenia [Unknown]
  - Neutropenia [Recovered/Resolved]
  - Constipation [Unknown]
  - Pruritus [Unknown]
  - Neutropenia [Recovered/Resolved]
  - Febrile neutropenia [Recovered/Resolved]
  - Febrile neutropenia [Recovered/Resolved]
  - Upper respiratory tract infection [Recovered/Resolved]
  - Infectious colitis [Unknown]
  - Muscular weakness [Unknown]

NARRATIVE: CASE EVENT DATE: 20151110
